FAERS Safety Report 4395492-0 (Version None)
Quarter: 2004Q3

REPORT INFORMATION
  Report Type: 
  Country: None (occurrence: None)
  Receive Date: 20040707
  Receipt Date: 20040609
  Transmission Date: 20050211
  Serious: Yes (Other)
  Sender: FDA-Public Use
  Company Number: M04-341-055

PATIENT
  Age: 50 Year
  Sex: Female
  Weight: 65 kg

DRUGS (4)
  1. VELCADE [Suspect]
     Indication: MULTIPLE MYELOMA
     Dosage: 2.20 MG, INTRAVENOUS
     Route: 042
     Dates: start: 20040102, end: 20040608
  2. ZOMETA [Concomitant]
  3. DEXAMETHASONE [Concomitant]
  4. ANALGESIC LIQ [Concomitant]

REACTIONS (3)
  - CONTUSION [None]
  - GINGIVAL BLEEDING [None]
  - PLATELET COUNT DECREASED [None]
